FAERS Safety Report 19363110 (Version 5)
Quarter: 2021Q4

REPORT INFORMATION
  Report Type: Report from Study
  Country: DE (occurrence: DE)
  Receive Date: 20210603
  Receipt Date: 20211129
  Transmission Date: 20220303
  Serious: Yes (Hospitalization)
  Sender: FDA-Public Use
  Company Number: DE-CELLTRION INC.-2021DE006554

PATIENT

DRUGS (18)
  1. TRASTUZUMAB [Suspect]
     Active Substance: TRASTUZUMAB
     Indication: Gastric cancer
     Dosage: 480 MG
     Route: 042
  2. TRASTUZUMAB [Suspect]
     Active Substance: TRASTUZUMAB
     Dosage: 840 MG, EVERY 3 WEEKS
     Route: 042
     Dates: start: 20210111
  3. OXALIPLATIN [Suspect]
     Active Substance: OXALIPLATIN
     Indication: Gastric cancer
     Dosage: 124.2 MG
     Route: 042
  4. OXALIPLATIN [Suspect]
     Active Substance: OXALIPLATIN
     Dosage: 165.6 MG
     Route: 042
     Dates: start: 20210111
  5. FLUOROURACIL [Suspect]
     Active Substance: FLUOROURACIL
     Indication: Gastric cancer
     Dosage: 5064.8 MG
     Route: 042
     Dates: start: 20210111
  6. FLUOROURACIL [Suspect]
     Active Substance: FLUOROURACIL
     Dosage: 3799.6 MG
     Route: 042
  7. PERTUZUMAB [Suspect]
     Active Substance: PERTUZUMAB
     Indication: Gastric cancer
     Dosage: 640 MG, EVERY 3 WEEKS
     Route: 042
     Dates: start: 20210111
  8. PERTUZUMAB [Suspect]
     Active Substance: PERTUZUMAB
     Dosage: 840 MG, EVERY 3 WEEKS
     Route: 042
  9. DOCETAXEL [Suspect]
     Active Substance: DOCETAXEL
     Indication: Gastric cancer
     Dosage: 97.4 MG, EVERY 2 WEEKS
     Route: 042
     Dates: start: 20210111
  10. DOCETAXEL [Suspect]
     Active Substance: DOCETAXEL
     Dosage: 73.1 MG, EVERY 2 WEEKS
     Route: 042
  11. DOCETAXEL [Suspect]
     Active Substance: DOCETAXEL
     Dosage: 77.1 MG, EVERY 2 WEEKS
     Route: 042
  12. CAPECITABINE [Suspect]
     Active Substance: CAPECITABINE
     Indication: Gastric cancer
     Dosage: D1-14 IN 3 WEEKLY SCHEDULE (1000 MG/M2/DAY)
     Route: 048
  13. CISPLATIN [Suspect]
     Active Substance: CISPLATIN
     Indication: Gastric cancer
     Dosage: EVERY 3 WEEKS
     Route: 042
  14. LEUCOVORIN [Suspect]
     Active Substance: LEUCOVORIN
     Indication: Gastric cancer
     Dosage: 389.6 MG, EVERY 2 WEEKS
     Route: 042
     Dates: start: 20210111
  15. LEUCOVORIN [Suspect]
     Active Substance: LEUCOVORIN
     Dosage: 292.2 MG, EVERY 2 WEEKS
     Route: 042
  16. DIMENHYDRINATE [Concomitant]
     Active Substance: DIMENHYDRINATE
     Dosage: 50 MG
     Route: 048
     Dates: start: 20210123, end: 20210124
  17. RINGER ACETATE [CALCIUM CHLORIDE;MAGNESIUM CHLORIDE;POTASSIUM CHLORIDE [Concomitant]
     Dosage: 44 MG
     Route: 042
     Dates: start: 20210119, end: 20210127
  18. RINGER ACETATE [CALCIUM CHLORIDE;MAGNESIUM CHLORIDE;POTASSIUM CHLORIDE [Concomitant]
     Dosage: 83 ML/H
     Route: 042
     Dates: start: 20210219, end: 20210223

REACTIONS (3)
  - Diarrhoea [Recovered/Resolved]
  - Diarrhoea [Recovered/Resolved]
  - Overdose [Unknown]

NARRATIVE: CASE EVENT DATE: 20210119
